FAERS Safety Report 5352081-9 (Version None)
Quarter: 2007Q2

REPORT INFORMATION
  Report Type: 
  Country: None (occurrence: None)
  Receive Date: 20070611
  Receipt Date: 20070531
  Transmission Date: 20071010
  Serious: No
  Sender: FDA-Public Use
  Company Number: US-ASTRAZENECA-2006UW11306

PATIENT
  Sex: Male
  Weight: 73.6 kg

DRUGS (4)
  1. SEROQUEL [Suspect]
     Indication: ANXIETY
     Dosage: 50 MG - 100 MG
     Route: 048
     Dates: start: 20041001, end: 20060201
  2. SEROQUEL [Suspect]
     Indication: DEPRESSION
     Dosage: 50 MG - 100 MG
     Route: 048
     Dates: start: 20041001, end: 20060201
  3. SEROQUEL [Suspect]
     Route: 048
     Dates: start: 20050728, end: 20060321
  4. SEROQUEL [Suspect]
     Route: 048
     Dates: start: 20050728, end: 20060321

REACTIONS (1)
  - DIABETES MELLITUS [None]
